FAERS Safety Report 9224206 (Version 1)
Quarter: 2013Q2

REPORT INFORMATION
  Report Type: Spontaneous
  Country: US (occurrence: US)
  Receive Date: 20130411
  Receipt Date: 20130411
  Transmission Date: 20140414
  Serious: No
  Sender: FDA-Public Use
  Company Number: US-009507513-1304USA004883

PATIENT
  Age: 23 Year
  Sex: Female

DRUGS (2)
  1. METFORMIN [Concomitant]
  2. NEXPLANON [Suspect]
     Indication: CONTRACEPTION
     Dosage: SINGLE ROD
     Route: 059
     Dates: start: 20130318

REACTIONS (1)
  - Implant site erythema [Not Recovered/Not Resolved]
